FAERS Safety Report 4353737-7 (Version None)
Quarter: 2004Q2

REPORT INFORMATION
  Report Type: 
  Country: None (occurrence: None)
  Receive Date: 20040430
  Receipt Date: 20030613
  Transmission Date: 20050107
  Serious: No
  Sender: FDA-Public Use
  Company Number: 2003UW07862

PATIENT
  Sex: Male

DRUGS (3)
  1. NEXIUM [Suspect]
     Dosage: 80 MG QD PO
     Route: 048
  2. CELEBREX [Concomitant]
  3. VASOTEC [Concomitant]

REACTIONS (2)
  - HYPONATRAEMIA [None]
  - ORTHOSTATIC HYPOTENSION [None]
